FAERS Safety Report 4642951-9 (Version None)
Quarter: 2005Q2

REPORT INFORMATION
  Report Type: 
  Country: None (occurrence: None)
  Receive Date: 20050422
  Receipt Date: 20050412
  Transmission Date: 20051028
  Serious: Yes (Hospitalization)
  Sender: FDA-Public Use
  Company Number: FR-ABBOTT-05P-056-0297186-00

PATIENT
  Age: 84 Year
  Sex: Female
  Weight: 67 kg

DRUGS (3)
  1. LIPANTHYL [Suspect]
     Indication: DRUG USE FOR UNKNOWN INDICATION
     Route: 048
  2. FLUINDIONE [Concomitant]
     Indication: DRUG USE FOR UNKNOWN INDICATION
     Route: 065
  3. FLUINDIONE [Concomitant]

REACTIONS (8)
  - ACUTE SINUSITIS [None]
  - BRONCHITIS [None]
  - CONFUSIONAL STATE [None]
  - INTERNATIONAL NORMALISED RATIO INCREASED [None]
  - PROTHROMBIN LEVEL DECREASED [None]
  - PYREXIA [None]
  - SINUSITIS [None]
  - SUPERINFECTION [None]
